FAERS Safety Report 4836661-2 (Version None)
Quarter: 2005Q4

REPORT INFORMATION
  Report Type: 
  Country: None (occurrence: None)
  Receive Date: 20051121
  Receipt Date: 20051111
  Transmission Date: 20060501
  Serious: Yes (Hospitalization)
  Sender: FDA-Public Use
  Company Number: AU-2005-022113

PATIENT
  Age: 22 Year
  Sex: Female

DRUGS (7)
  1. LEUKINE [Suspect]
     Indication: CROHN'S DISEASE
     Dosage: 0.7 ML, 1X/DAY, SUBCUTANEOUS
     Route: 058
     Dates: start: 20051005, end: 20051023
  2. PARACETAMOL [Concomitant]
  3. LEVLEN ED [Concomitant]
  4. GLUCOSAMINE (GLUCOSAMINE) [Concomitant]
  5. PARACETAMOL [Concomitant]
  6. PARACETAMOL [Concomitant]
  7. PARACETAMOL [Concomitant]

REACTIONS (9)
  - ABDOMINAL ABSCESS [None]
  - ABDOMINAL PAIN [None]
  - BACK PAIN [None]
  - DISEASE PROGRESSION [None]
  - FIBROSIS [None]
  - FISTULA [None]
  - HEPATOSPLENOMEGALY [None]
  - NAUSEA [None]
  - PERITONITIS [None]
